FAERS Safety Report 5376110-1 (Version None)
Quarter: 2007Q3

REPORT INFORMATION
  Report Type: 
  Country: None (occurrence: None)
  Receive Date: 20070702
  Receipt Date: 20070621
  Transmission Date: 20080115
  Serious: Yes (Death, Hospitalization)
  Sender: FDA-Public Use
  Company Number: B0462805A

PATIENT
  Age: 84 Year
  Sex: Male
  Weight: 54 kg

DRUGS (7)
  1. ARIXTRA [Suspect]
     Dosage: 7.5MG PER DAY
     Route: 058
     Dates: start: 20061028, end: 20061101
  2. LASIX [Concomitant]
  3. PERINDOPRIL ERBUMINE [Concomitant]
  4. DIGOXIN [Concomitant]
  5. ASPIRIN [Concomitant]
  6. AMIODARONE [Concomitant]
  7. DIFFU K [Concomitant]

REACTIONS (2)
  - HAEMORRHAGE [None]
  - OVERDOSE [None]
